FAERS Safety Report 25868795 (Version 1)
Quarter: 2025Q4

REPORT INFORMATION
  Report Type: Report from Study
  Country: CN (occurrence: CN)
  Receive Date: 20251001
  Receipt Date: 20251001
  Transmission Date: 20260118
  Serious: Yes (Hospitalization, Other)
  Sender: ROCHE
  Company Number: CN-ROCHE-10000323509

PATIENT
  Age: 68 Year
  Sex: Male

DRUGS (3)
  1. TECENTRIQ [Suspect]
     Active Substance: ATEZOLIZUMAB
     Indication: Hepatic cancer
     Dosage: 1200MG/20ML/VIAL
     Route: 042
     Dates: start: 20250125
  2. BEVACIZUMAB [Suspect]
     Active Substance: BEVACIZUMAB
     Indication: Hepatic cancer
     Dosage: 100MG(4ML)/VIAL/BOX
     Route: 042
     Dates: start: 20250125
  3. Tenofovir alafenami de fumarate tablets [Concomitant]
     Indication: Hepatitis B
     Route: 048

REACTIONS (5)
  - Duodenogastric reflux [Recovering/Resolving]
  - Pain [Recovering/Resolving]
  - Hepatic function abnormal [Not Recovered/Not Resolved]
  - Cholecystectomy [Recovering/Resolving]
  - Hepatectomy [Recovering/Resolving]

NARRATIVE: CASE EVENT DATE: 20250501
